FAERS Safety Report 10504153 (Version 1)
Quarter: 2014Q4

REPORT INFORMATION
  Report Type: Spontaneous
  Country: US (occurrence: None)
  Receive Date: 20141007
  Receipt Date: 20141007
  Transmission Date: 20150528
  Serious: Yes (Disabling)
  Sender: FDA-Public Use
  Company Number: None

PATIENT
  Age: 54 Year
  Sex: Male
  Weight: 111.13 kg

DRUGS (1)
  1. EXALGO [Suspect]
     Active Substance: HYDROMORPHONE HYDROCHLORIDE
     Indication: PAIN
     Route: 048
     Dates: start: 20120615, end: 20140928

REACTIONS (7)
  - Loss of consciousness [None]
  - Parosmia [None]
  - Feeling abnormal [None]
  - Memory impairment [None]
  - Headache [None]
  - Cerebrovascular accident [None]
  - Pain in extremity [None]

NARRATIVE: CASE EVENT DATE: 20140129
